FAERS Safety Report 6112348-3 (Version None)
Quarter: 2009Q1

REPORT INFORMATION
  Report Type: 
  Country: None (occurrence: None)
  Receive Date: 20090311
  Receipt Date: 20090311
  Transmission Date: 20090719
  Serious: Yes (Hospitalization)
  Sender: FDA-Public Use
  Company Number: None

PATIENT
  Sex: Female
  Weight: 72.5755 kg

DRUGS (1)
  1. ANUCORT - HC 25 MG SUPPOSITORY G + W LABORATORIES [Suspect]
     Indication: HAEMORRHOIDS
     Dosage: 1 SUPPOSITORY NIGHTLY
     Dates: start: 20090206, end: 20090211

REACTIONS (10)
  - HAEMORRHAGE [None]
  - HEADACHE [None]
  - INSOMNIA [None]
  - MENINGITIS VIRAL [None]
  - MUSCLE SPASMS [None]
  - NECK PAIN [None]
  - NEOPLASM [None]
  - NERVOUS SYSTEM DISORDER [None]
  - PAIN [None]
  - VOMITING [None]
